FAERS Safety Report 24562089 (Version 2)
Quarter: 2024Q4

REPORT INFORMATION
  Report Type: Spontaneous
  Country: US (occurrence: US)
  Receive Date: 20241029
  Receipt Date: 20241125
  Transmission Date: 20250115
  Serious: No
  Sender: EISAI
  Company Number: US-Eisai-EC-2024-176667

PATIENT
  Age: 75 Year
  Sex: Female

DRUGS (7)
  1. LEQEMBI [Suspect]
     Active Substance: LECANEMAB-IRMB
     Indication: Cognitive disorder
     Dosage: DOSE UNKNOWN
     Route: 042
     Dates: start: 20240808
  2. RIVASTIGMINE [Concomitant]
     Active Substance: RIVASTIGMINE
  3. LEVOTHYROXINE [Concomitant]
     Active Substance: LEVOTHYROXINE
  4. EZETIMIBE [Concomitant]
     Active Substance: EZETIMIBE
  5. PEPCID [Concomitant]
     Active Substance: FAMOTIDINE
  6. METHOCARBAMOL [Concomitant]
     Active Substance: METHOCARBAMOL
  7. HYDROCHLOROTHIAZIDE [Concomitant]
     Active Substance: HYDROCHLOROTHIAZIDE

REACTIONS (1)
  - Amyloid related imaging abnormality-microhaemorrhages and haemosiderin deposits [Not Recovered/Not Resolved]

NARRATIVE: CASE EVENT DATE: 20240923
